FAERS Safety Report 4614958-9 (Version None)
Quarter: 2005Q1

REPORT INFORMATION
  Report Type: 
  Country: None (occurrence: None)
  Receive Date: 20050322
  Receipt Date: 20050302
  Transmission Date: 20050727
  Serious: Yes (Other)
  Sender: FDA-Public Use
  Company Number: BR-ROCHE-397411

PATIENT
  Age: 36 Year
  Sex: Female
  Weight: 63 kg

DRUGS (2)
  1. XENICAL [Suspect]
     Indication: OBESITY
     Route: 048
     Dates: start: 20041020
  2. REDUCTIL [Suspect]
     Indication: OBESITY
     Route: 048
     Dates: start: 20040615, end: 20041215

REACTIONS (2)
  - HAEMORRHOIDS [None]
  - THROMBOSIS [None]
